FAERS Safety Report 7990024-X (Version None)
Quarter: 2011Q4

REPORT INFORMATION
  Report Type: 
  Country: None (occurrence: None)
  Receive Date: 20111219
  Receipt Date: 20101028
  Transmission Date: 20120403
  Serious: No
  Sender: FDA-Public Use
  Company Number: US-ASTRAZENECA-2010SE51724

PATIENT
  Age: 71 Year
  Sex: Female

DRUGS (6)
  1. TOPROL-XL [Concomitant]
  2. SYNTHROID [Concomitant]
  3. HYDROCHLOROTHIAZIDE [Concomitant]
  4. LIBRAX [Concomitant]
  5. PREMPRO [Concomitant]
  6. CRESTOR [Suspect]
     Indication: HYPERCHOLESTEROLAEMIA
     Route: 048
     Dates: start: 20100701, end: 20101025

REACTIONS (6)
  - FACIAL PAIN [None]
  - ORAL INFECTION [None]
  - TOOTHACHE [None]
  - EYE PAIN [None]
  - GOUT [None]
  - HEADACHE [None]
